FAERS Safety Report 9375691 (Version 1)
Quarter: 2013Q2

REPORT INFORMATION
  Report Type: Spontaneous
  Country: KR (occurrence: KP)
  Receive Date: 20130628
  Receipt Date: 20130628
  Transmission Date: 20140414
  Serious: Yes (Other)
  Sender: FDA-Public Use
  Company Number: KR-BAXTER-2013BAX025471

PATIENT
  Sex: 0

DRUGS (3)
  1. ENDOXAN INJ 500MG [Suspect]
     Indication: PERIPHERAL T-CELL LYMPHOMA UNSPECIFIED
     Dosage: ON DAYS 3 AND 2
     Route: 042
  2. BUSULFAN [Suspect]
     Indication: PERIPHERAL T-CELL LYMPHOMA UNSPECIFIED
     Dosage: EVERY 6 HOURS FROM DAY 7 TO 5
     Route: 042
  3. ETOPOSIDE [Suspect]
     Indication: PERIPHERAL T-CELL LYMPHOMA UNSPECIFIED
     Dosage: DAYS 5 AND 4
     Route: 042

REACTIONS (1)
  - Infection [Unknown]
